FAERS Safety Report 11620635 (Version 4)
Quarter: 2016Q2

REPORT INFORMATION
  Report Type: Spontaneous
  Country: JP (occurrence: JP)
  Receive Date: 20151012
  Receipt Date: 20160420
  Transmission Date: 20160815
  Serious: Yes (Death, Life-Threatening, Hospitalization)
  Sender: FDA-Public Use
  Company Number: JP-SA-2015SA157663

PATIENT
  Age: 83 Year
  Sex: Female
  Weight: 60 kg

DRUGS (3)
  1. CLOPIDOGREL BISULFATE. [Suspect]
     Active Substance: CLOPIDOGREL BISULFATE
     Indication: PERCUTANEOUS CORONARY INTERVENTION
     Route: 065
  2. ASPIRIN. [Concomitant]
     Active Substance: ASPIRIN
     Indication: ACUTE MYOCARDIAL INFARCTION
  3. CLOPIDOGREL BISULFATE. [Suspect]
     Active Substance: CLOPIDOGREL BISULFATE
     Indication: ACUTE MYOCARDIAL INFARCTION
     Route: 065

REACTIONS (26)
  - Blood pressure decreased [Fatal]
  - Haematuria [Unknown]
  - Blood urea increased [Unknown]
  - Ventricular hypokinesia [Fatal]
  - Blood creatine phosphokinase MB increased [Fatal]
  - Mucosal haemorrhage [Unknown]
  - Electrocardiogram ST segment elevation [Fatal]
  - Red blood cell schistocytes present [Fatal]
  - Platelet count decreased [Fatal]
  - Pulmonary alveolar haemorrhage [Unknown]
  - Blood lactate dehydrogenase increased [Fatal]
  - Biopsy heart abnormal [Fatal]
  - Blood bilirubin increased [Fatal]
  - Cardiogenic shock [Not Recovered/Not Resolved]
  - Bilirubin conjugated increased [Fatal]
  - Blood creatine phosphokinase increased [Fatal]
  - Intravascular haemolysis [Fatal]
  - Vomiting [Fatal]
  - Thrombotic thrombocytopenic purpura [Fatal]
  - Thrombotic microangiopathy [Fatal]
  - Activated partial thromboplastin time prolonged [Fatal]
  - Renal impairment [Unknown]
  - Blood creatinine increased [Unknown]
  - Troponin T increased [Fatal]
  - Cardio-respiratory arrest [Fatal]
  - Ischaemic cardiomyopathy [Fatal]
